FAERS Safety Report 9208871 (Version 1)
Quarter: 2013Q1

REPORT INFORMATION
  Report Type: Spontaneous
  Country: TR (occurrence: None)
  Receive Date: 20130225
  Receipt Date: 20130225
  Transmission Date: 20140127
  Serious: Yes (Hospitalization)
  Sender: FDA-Public Use
  Company Number: TR-ALKEM-000011

PATIENT
  Age: 48 Year
  Sex: Female

DRUGS (1)
  1. METFORMIN (METFORMIN) [Suspect]
     Indication: DIABETES MELLITUS
     Route: 048

REACTIONS (1)
  - Angioedema [None]
